FAERS Safety Report 24863875 (Version 2)
Quarter: 2025Q1

REPORT INFORMATION
  Report Type: Spontaneous
  Country: FI (occurrence: FI)
  Receive Date: 20250120
  Receipt Date: 20250127
  Transmission Date: 20250409
  Serious: No
  Sender: UCB
  Company Number: FI-UCBSA-2025003037

PATIENT
  Age: 61 Year
  Sex: Female

DRUGS (1)
  1. BIMZELX [Suspect]
     Active Substance: BIMEKIZUMAB-BKZX
     Indication: Psoriasis
     Dosage: 320 MILLIGRAM, EV 4 WEEKS

REACTIONS (3)
  - Device malfunction [Unknown]
  - Wrong technique in product usage process [Unknown]
  - Product dose omission issue [Unknown]
